FAERS Safety Report 21101133 (Version 2)
Quarter: 2022Q3

REPORT INFORMATION
  Report Type: Spontaneous
  Country: RU (occurrence: RU)
  Receive Date: 20220719
  Receipt Date: 20220726
  Transmission Date: 20221027
  Serious: Yes (Other)
  Sender: FDA-Public Use
  Company Number: RU-FreseniusKabi-FK202209963

PATIENT
  Sex: Female

DRUGS (6)
  1. IRINOTECAN [Suspect]
     Active Substance: IRINOTECAN
     Indication: Chemotherapy
     Dosage: ON THE FIRST DAY?TREATMENT PLAN : TARGETED THERAPY + MONOCHEMOTHERAPY
  2. OXALIPLATIN [Suspect]
     Active Substance: OXALIPLATIN
     Indication: Chemotherapy
     Dosage: EIGHT COURSES OF ADJUVANT PCT?ON THE FIRST DAY, CYCLE - 21 DAYS.
  3. GEMCITABINE [Suspect]
     Active Substance: GEMCITABINE
     Indication: Chemotherapy
     Dosage: EIGHT COURSES OF ADJUVANT PCT?ON THE FIRST AND EIGHTH DAYS
  4. DABRAFENIB [Suspect]
     Active Substance: DABRAFENIB
     Indication: Chemotherapy
     Dosage: TREATMENT PLAN : TARGETED THERAPY + MONOCHEMOTHERAPY?150 MG TWICE DAILY (CORRESPONDING TO A TOTAL DA
  5. TRAMETINIB [Suspect]
     Active Substance: TRAMETINIB
     Indication: Chemotherapy
     Dosage: TREATMENT PLAN : TARGETED THERAPY + MONOCHEMOTHERAPY
  6. PANITUMUMAB [Suspect]
     Active Substance: PANITUMUMAB
     Indication: Chemotherapy
     Dosage: TREATMENT PLAN : TARGETED THERAPY + MONOCHEMOTHERAPY?6 MG/KG ON DAY 1;  CYCLE OF 14 DAYS.

REACTIONS (3)
  - Polyneuropathy [Unknown]
  - Hepatitis toxic [Unknown]
  - Skin toxicity [Unknown]
